FAERS Safety Report 17955402 (Version 1)
Quarter: 2020Q2

REPORT INFORMATION
  Report Type: Spontaneous
  Country: US (occurrence: US)
  Receive Date: 20200627
  Receipt Date: 20200627
  Transmission Date: 20200714
  Serious: Yes (Death, Hospitalization)
  Sender: FDA-Public Use
  Company Number: None

PATIENT
  Age: 60 Year
  Sex: Male
  Weight: 110 kg

DRUGS (4)
  1. DACARBAZINE. [Suspect]
     Active Substance: DACARBAZINE
     Dates: end: 20200611
  2. DOXORUBICIN HYDROCHLORIDE. [Suspect]
     Active Substance: DOXORUBICIN HYDROCHLORIDE
     Dates: end: 20200611
  3. SGN-35 (BRENTUXIMAB VEDOTIN) [Suspect]
     Active Substance: BRENTUXIMAB VEDOTIN
     Dates: end: 20200611
  4. VINBLASTINE SULFATE. [Suspect]
     Active Substance: VINBLASTINE SULFATE
     Dates: end: 20200611

REACTIONS (17)
  - Inflammatory bowel disease [None]
  - Atrial fibrillation [None]
  - Nausea [None]
  - Gastric dilatation [None]
  - Vomiting [None]
  - Asthenia [None]
  - Respiratory distress [None]
  - Sepsis [None]
  - Gastrointestinal disorder [None]
  - Dialysis [None]
  - Malaise [None]
  - Acute kidney injury [None]
  - Diarrhoea [None]
  - Condition aggravated [None]
  - Febrile neutropenia [None]
  - Heart rate increased [None]
  - Tachypnoea [None]

NARRATIVE: CASE EVENT DATE: 20200618
